FAERS Safety Report 6531265-8 (Version None)
Quarter: 2010Q1

REPORT INFORMATION
  Report Type: 
  Country: None (occurrence: None)
  Receive Date: 20100108
  Receipt Date: 20100105
  Transmission Date: 20100710
  Serious: Yes (Hospitalization)
  Sender: FDA-Public Use
  Company Number: ZA-SANOFI-AVENTIS-2009SA009063

PATIENT
  Age: 66 Year
  Sex: Male
  Weight: 91.4 kg

DRUGS (26)
  1. AFLIBERCEPT [Suspect]
     Route: 042
     Dates: start: 20091210, end: 20091210
  2. AFLIBERCEPT [Suspect]
     Route: 042
     Dates: start: 20091112, end: 20091112
  3. DOCETAXEL [Suspect]
     Route: 042
     Dates: start: 20091210, end: 20091210
  4. DOCETAXEL [Suspect]
     Route: 042
     Dates: start: 20091112, end: 20091112
  5. PREDNISONE [Suspect]
     Route: 048
     Dates: start: 20091112, end: 20091210
  6. REMERON [Concomitant]
  7. PANADO [Concomitant]
  8. DOXYFENE [Concomitant]
  9. ALL OTHER THERAPEUTIC PRODUCTS [Concomitant]
  10. AMOCLAV PLUS [Concomitant]
  11. ALL OTHER THERAPEUTIC PRODUCTS [Concomitant]
  12. LIDOCAINE [Concomitant]
  13. ALL OTHER THERAPEUTIC PRODUCTS [Concomitant]
  14. VOLTAREN [Concomitant]
  15. NORMACOL [Concomitant]
  16. BONDRONAT [Concomitant]
  17. ALL OTHER THERAPEUTIC PRODUCTS [Concomitant]
  18. MULTI-VITAMINS [Concomitant]
  19. LOVAZA [Concomitant]
  20. MAGNESIT [Concomitant]
  21. NULYTELY [Concomitant]
  22. SENOKOT /UNK/ [Concomitant]
  23. WARFARIN [Concomitant]
  24. SUPREFACT [Concomitant]
     Indication: HORMONE REPLACEMENT THERAPY
     Dates: start: 20061001
  25. ALL OTHER THERAPEUTIC PRODUCTS [Concomitant]
  26. ZOPIMED [Concomitant]
     Dates: start: 20090401

REACTIONS (1)
  - DEHYDRATION [None]
